FAERS Safety Report 6972592-X (Version None)
Quarter: 2010Q3

REPORT INFORMATION
  Report Type: 
  Country: None (occurrence: None)
  Receive Date: 20100909
  Receipt Date: 20100901
  Transmission Date: 20110219
  Serious: Yes (Hospitalization)
  Sender: FDA-Public Use
  Company Number: FR-ASTRAZENECA-2010SE41342

PATIENT
  Age: 20665 Day
  Sex: Female

DRUGS (6)
  1. PULMICORT [Suspect]
     Indication: OTITIS MEDIA
     Route: 055
     Dates: start: 20091020, end: 20091030
  2. ROCEPHIN [Suspect]
     Indication: OTITIS MEDIA
     Route: 042
     Dates: start: 20091020, end: 20091030
  3. DERINOX [Suspect]
     Indication: OTITIS MEDIA
     Route: 055
     Dates: start: 20091020, end: 20091030
  4. PROPRANOLOL [Concomitant]
     Indication: MIGRAINE
     Route: 048
  5. TOCO [Concomitant]
     Route: 048
  6. ENDOTELON [Concomitant]
     Indication: VENOUS INSUFFICIENCY
     Route: 048

REACTIONS (1)
  - ASTHMATIC CRISIS [None]
